FAERS Safety Report 13997294 (Version 1)
Quarter: 2017Q3

REPORT INFORMATION
  Report Type: Spontaneous
  Country: CA (occurrence: CA)
  Receive Date: 20170921
  Receipt Date: 20170921
  Transmission Date: 20171128
  Serious: Yes (Hospitalization)
  Sender: FDA-Public Use
  Company Number: CA-ASTRAZENECA-2017SE95725

PATIENT
  Age: 52 Year
  Sex: Female

DRUGS (3)
  1. ATIVAN [Concomitant]
     Active Substance: LORAZEPAM
     Dosage: 0.25MG AS REQUIRED
     Route: 060
  2. ALVESCO [Suspect]
     Active Substance: CICLESONIDE
     Dosage: 200 MCG 2 PUFFS DAILY
     Route: 055
  3. VENTOLIN [Concomitant]
     Active Substance: ALBUTEROL SULFATE
     Dosage: 2 PUFFS QID PRN
     Route: 055

REACTIONS (8)
  - Chills [Not Recovered/Not Resolved]
  - Pain [Not Recovered/Not Resolved]
  - Malaise [Not Recovered/Not Resolved]
  - Crohn^s disease [Unknown]
  - Laboratory test abnormal [Unknown]
  - Asthma [Unknown]
  - Abdominal abscess [Not Recovered/Not Resolved]
  - Pyrexia [Not Recovered/Not Resolved]

NARRATIVE: CASE EVENT DATE: 2015
